FAERS Safety Report 8838771 (Version 2)
Quarter: 2013Q4

REPORT INFORMATION
  Report Type: Report from Study
  Country: GB (occurrence: GB)
  Receive Date: 20121013
  Receipt Date: 20131120
  Transmission Date: 20140711
  Serious: Yes (Hospitalization)
  Sender: FDA-Public Use
  Company Number: GB-ACCORD-014872

PATIENT
  Age: 56 Year
  Sex: Female
  Weight: 101 kg

DRUGS (4)
  1. DOCETAXEL [Suspect]
     Indication: BREAST CANCER
     Route: 042
     Dates: start: 20120816, end: 20120906
  2. FILGRASTIM [Suspect]
     Indication: PRODUCT USED FOR UNKNOWN INDICATION
     Route: 065
     Dates: start: 20120907, end: 20120913
  3. HERCEPTIN [Suspect]
     Indication: BREAST CANCER
     Route: 042
     Dates: start: 20120816, end: 20120906
  4. PERTUZUMAB [Suspect]
     Indication: BREAST CANCER
     Dosage: UNK, 3 TIMES/WEEK
     Route: 042
     Dates: start: 20120816, end: 20120906

REACTIONS (6)
  - Neutropenic sepsis [Unknown]
  - Pyrexia [Recovering/Resolving]
  - Chills [Unknown]
  - Nausea [Unknown]
  - Cold sweat [Unknown]
  - Sputum discoloured [Unknown]
